FAERS Safety Report 14211927 (Version 2)
Quarter: 2018Q3

REPORT INFORMATION
  Report Type: Report from Study
  Country: US (occurrence: US)
  Receive Date: 20171122
  Receipt Date: 20180716
  Transmission Date: 20181010
  Serious: Yes (Life-Threatening, Hospitalization, Other)
  Sender: FDA-Public Use
  Company Number: US-MYLANLABS-2017M1074319

PATIENT
  Age: 56 Year
  Sex: Male
  Weight: 123 kg

DRUGS (1)
  1. CLOZAPINE. [Suspect]
     Active Substance: CLOZAPINE
     Indication: PSYCHOTIC DISORDER
     Dosage: 4 DF, HS
     Route: 048
     Dates: start: 20171116, end: 20171211

REACTIONS (12)
  - Acute respiratory failure [Unknown]
  - Renal failure [Unknown]
  - Liver function test increased [Unknown]
  - Mental status changes [Unknown]
  - Pneumonia aspiration [Recovering/Resolving]
  - Pulmonary embolism [Unknown]
  - Antipsychotic drug level increased [Not Recovered/Not Resolved]
  - Multiple organ dysfunction syndrome [Unknown]
  - Dysarthria [Unknown]
  - Aphasia [Unknown]
  - Somnolence [Unknown]
  - Deep vein thrombosis [Unknown]

NARRATIVE: CASE EVENT DATE: 2017
